FAERS Safety Report 4975889-8 (Version None)
Quarter: 2006Q2

REPORT INFORMATION
  Report Type: 
  Country: None (occurrence: None)
  Receive Date: 20060412
  Receipt Date: 20060327
  Transmission Date: 20061013
  Serious: Yes (Other)
  Sender: FDA-Public Use
  Company Number: 001#1#2006-00063

PATIENT
  Age: 70 Year
  Sex: Female

DRUGS (8)
  1. ALPROSTADIL [Suspect]
     Indication: PERIPHERAL ARTERIAL OCCLUSIVE DISEASE
     Dosage: 40 MCG INTRAVENOUS
     Route: 042
     Dates: start: 20060324, end: 20060325
  2. SODIUM CHLORIDE [Suspect]
     Indication: PERIPHERAL ARTERIAL OCCLUSIVE DISEASE
     Dosage: 25 ML INTRAVENOUS
     Route: 042
     Dates: start: 20060324, end: 20060325
  3. ASPIRIN [Concomitant]
  4. METAMIZOLE (METAMIZOLE SODIUM) [Concomitant]
  5. FUROSEMIDE [Concomitant]
  6. CAPTOPRIL [Concomitant]
  7. ALLOPURINOL [Concomitant]
  8. LEVOTHYROXINE SODIUM [Concomitant]

REACTIONS (1)
  - THROMBOCYTOPENIA [None]
